FAERS Safety Report 7215818-X (Version None)
Quarter: 2011Q1

REPORT INFORMATION
  Report Type: 
  Country: None (occurrence: None)
  Receive Date: 20110107
  Receipt Date: 20101229
  Transmission Date: 20110831
  Serious: Yes (Other)
  Sender: FDA-Public Use
  Company Number: GB-ASTRAZENECA-2010SE61200

PATIENT
  Sex: Female

DRUGS (2)
  1. MORPHINE [Concomitant]
  2. MARCAINE [Suspect]
     Indication: CAESAREAN SECTION
     Route: 037

REACTIONS (6)
  - ARACHNOID CYST [None]
  - HEADACHE [None]
  - VOMITING [None]
  - PARAPLEGIA [None]
  - HYDROCEPHALUS [None]
  - BONE PAIN [None]
